FAERS Safety Report 5115654-4 (Version None)
Quarter: 2006Q3

REPORT INFORMATION
  Report Type: 
  Country: None (occurrence: None)
  Receive Date: 20060927
  Receipt Date: 20060823
  Transmission Date: 20061208
  Serious: Yes (Other)
  Sender: FDA-Public Use
  Company Number: ES-BRISTOL-MYERS SQUIBB COMPANY-13485495

PATIENT
  Age: 70 Year
  Sex: Female
  Weight: 42 kg

DRUGS (7)
  1. MAYGACE [Suspect]
     Dates: start: 20060701, end: 20060904
  2. SINTROM [Interacting]
  3. FERRO SANOL [Concomitant]
     Route: 048
     Dates: start: 20060701
  4. LANSOPRAZOLE [Concomitant]
  5. SERC [Concomitant]
     Route: 048
  6. DOGMATIL [Concomitant]
     Route: 048
  7. DOLALGIAL [Concomitant]
     Route: 048

REACTIONS (2)
  - DRUG INTERACTION [None]
  - INTERNATIONAL NORMALISED RATIO DECREASED [None]
